FAERS Safety Report 24728415 (Version 1)
Quarter: 2024Q4

REPORT INFORMATION
  Report Type: Spontaneous
  Country: CN (occurrence: CN)
  Receive Date: 20241212
  Receipt Date: 20241212
  Transmission Date: 20250114
  Serious: Yes (Other)
  Sender: AMGEN
  Company Number: CN-AMGEN-CHNSP2024242854

PATIENT
  Age: 65 Year
  Sex: Female

DRUGS (2)
  1. BLINCYTO [Suspect]
     Active Substance: BLINATUMOMAB
     Indication: Lymphocytic leukaemia
     Dosage: 17.50 MICROGRAM, DRIP
     Route: 040
     Dates: start: 20241025, end: 20241031
  2. GLEEVEC [Suspect]
     Active Substance: IMATINIB MESYLATE
     Indication: Acute lymphocytic leukaemia
     Dosage: 3 GRAIN
     Route: 048
     Dates: start: 20241022, end: 20241101

REACTIONS (1)
  - Myelosuppression [Recovering/Resolving]

NARRATIVE: CASE EVENT DATE: 20241031
